FAERS Safety Report 25350427 (Version 1)
Quarter: 2025Q2

REPORT INFORMATION
  Report Type: Spontaneous
  Country: CN (occurrence: CN)
  Receive Date: 20250523
  Receipt Date: 20250523
  Transmission Date: 20250716
  Serious: Yes (Life-Threatening, Hospitalization, Disabling)
  Sender: BEIGENE
  Company Number: CN-BEIGENE-BGN-2025-008212

PATIENT
  Age: 71 Year
  Weight: 65 kg

DRUGS (12)
  1. TISLELIZUMAB [Suspect]
     Active Substance: TISLELIZUMAB
     Indication: Lung neoplasm malignant
     Dosage: 200 MILLIGRAM,D1,Q3WK
     Route: 041
  2. TISLELIZUMAB [Suspect]
     Active Substance: TISLELIZUMAB
     Dosage: 200 MILLIGRAM,D1,Q3WK
  3. TISLELIZUMAB [Suspect]
     Active Substance: TISLELIZUMAB
     Dosage: 200 MILLIGRAM,D1,Q3WK
  4. TISLELIZUMAB [Suspect]
     Active Substance: TISLELIZUMAB
     Dosage: 200 MILLIGRAM,D1,Q3WK
     Route: 041
  5. TISLELIZUMAB [Suspect]
     Active Substance: TISLELIZUMAB
     Dosage: 200 MILLIGRAM,D1,Q3WK
     Route: 041
  6. TISLELIZUMAB [Suspect]
     Active Substance: TISLELIZUMAB
     Dosage: 200 MILLIGRAM,D1,Q3WK
  7. TISLELIZUMAB [Suspect]
     Active Substance: TISLELIZUMAB
     Dosage: 200 MILLIGRAM,D1,Q3WK
  8. TISLELIZUMAB [Suspect]
     Active Substance: TISLELIZUMAB
     Dosage: 200 MILLIGRAM,D1,Q3WK
     Route: 041
  9. CISPLATIN [Concomitant]
     Active Substance: CISPLATIN
     Indication: Lung neoplasm malignant
     Dosage: 40 MILLIGRAM,D1-D3, Q3WK
  10. CISPLATIN [Concomitant]
     Active Substance: CISPLATIN
     Dosage: 40 MILLIGRAM,D1-D3, Q3WK
     Route: 041
  11. CISPLATIN [Concomitant]
     Active Substance: CISPLATIN
     Dosage: 40 MILLIGRAM,D1-D3, Q3WK
  12. CISPLATIN [Concomitant]
     Active Substance: CISPLATIN
     Dosage: 40 MILLIGRAM,D1-D3, Q3WK
     Route: 041

REACTIONS (3)
  - Cardiomyopathy [Unknown]
  - Extrasystoles [Unknown]
  - Pulse abnormal [Unknown]
